FAERS Safety Report 9999535 (Version 1)
Quarter: 2014Q1

REPORT INFORMATION
  Report Type: Spontaneous
  Country: GB (occurrence: None)
  Receive Date: 20140310
  Receipt Date: 20140310
  Transmission Date: 20141002
  Serious: Yes (Other)
  Sender: FDA-Public Use
  Company Number: GB-DEXPHARM-20140051

PATIENT
  Age: 79 Year
  Sex: Male

DRUGS (7)
  1. OMEPRAZOLE [Suspect]
     Indication: DYSPEPSIA
     Route: 048
     Dates: start: 20100723, end: 20140114
  2. ASPIRIN [Concomitant]
  3. BENDROFLUMETHIAZIDE [Concomitant]
  4. LOSARTAN [Concomitant]
  5. MOVICOL [Concomitant]
  6. PARACETAMOL [Concomitant]
  7. SERTRALINE [Concomitant]

REACTIONS (2)
  - Nightmare [None]
  - Soft tissue injury [None]
